FAERS Safety Report 4317096-8 (Version None)
Quarter: 2004Q1

REPORT INFORMATION
  Report Type: 
  Country: None (occurrence: None)
  Receive Date: 20040312
  Receipt Date: 20040302
  Transmission Date: 20041129
  Serious: Yes (Life-Threatening, Hospitalization)
  Sender: FDA-Public Use
  Company Number: 2004201972CA

PATIENT
  Age: 73 Year
  Sex: Male
  Weight: 70.3 kg

DRUGS (11)
  1. ESTRACYT (ESTRAMUSTINE PHOSPHATE) CAPSULE [Suspect]
     Indication: PROSTATE CANCER
     Dosage: 1ST CYCLE
  2. PACLITAXEL [Suspect]
     Indication: PROSTATE CANCER
     Dosage: 243 MG, CYCLE 1, Q21DAYS, IV
     Route: 042
     Dates: start: 20030401, end: 20030401
  3. ETOPOSIDE [Suspect]
     Indication: PROSTATE CANCER
     Dosage: 50 MG/M2, CYCLE 1, ORAL
     Route: 048
  4. FLONASE [Concomitant]
  5. SALBUTAMOL (SALBUTAMOL) [Concomitant]
  6. SALMETEROL (SALMETEROL) [Concomitant]
  7. FLUTICASONE PROPIONATE [Concomitant]
  8. APO-ALLOPURINOL [Concomitant]
  9. STEMETIL ^SPECIA^ (PROCHLORPERAZINE) [Concomitant]
  10. ZOLADEX [Concomitant]
  11. BIASCIN [Concomitant]

REACTIONS (14)
  - BACTERIAL INFECTION [None]
  - DIALYSIS [None]
  - FEBRILE NEUTROPENIA [None]
  - MEDICATION ERROR [None]
  - MUCOSAL INFLAMMATION [None]
  - PARAESTHESIA [None]
  - PNEUMONIA [None]
  - PULMONARY OEDEMA [None]
  - RENAL FAILURE ACUTE [None]
  - RENAL TUBULAR NECROSIS [None]
  - RESPIRATORY FAILURE [None]
  - SEPSIS [None]
  - SYSTEMIC INFLAMMATORY RESPONSE SYNDROME [None]
  - TACHYCARDIA [None]
